FAERS Safety Report 8282377-2 (Version None)
Quarter: 2012Q2

REPORT INFORMATION
  Report Type: 
  Country: None (occurrence: None)
  Receive Date: 20120413
  Receipt Date: 20120410
  Transmission Date: 20120825
  Serious: Yes (Death)
  Sender: FDA-Public Use
  Company Number: AU-ASTRAZENECA-2012SE18585

PATIENT
  Age: 79 Year
  Sex: Female

DRUGS (2)
  1. BRILINTA [Suspect]
     Route: 048
     Dates: start: 20120227, end: 20120301
  2. CLOPIDOGREL [Concomitant]

REACTIONS (1)
  - DEATH [None]
